FAERS Safety Report 8472294-7 (Version None)
Quarter: 2012Q2

REPORT INFORMATION
  Report Type: 
  Country: None (occurrence: None)
  Receive Date: 20120622
  Receipt Date: 20120622
  Transmission Date: 20120825
  Serious: Yes (Death)
  Sender: FDA-Public Use
  Company Number: None

PATIENT
  Age: 72 Year
  Sex: Female
  Weight: 86.1834 kg

DRUGS (1)
  1. JANUVIA [Suspect]
     Indication: DIABETES MELLITUS
     Dosage: 1 TABLET DAILY PO
     Route: 048
     Dates: start: 20100104, end: 20111225

REACTIONS (9)
  - JAUNDICE [None]
  - DECREASED APPETITE [None]
  - DIARRHOEA [None]
  - CARCINOEMBRYONIC ANTIGEN INCREASED [None]
  - GASTROINTESTINAL HAEMORRHAGE [None]
  - RENAL FAILURE ACUTE [None]
  - SMALL INTESTINE CARCINOMA [None]
  - PANCREATITIS CHRONIC [None]
  - PANCREATIC CARCINOMA [None]
